FAERS Safety Report 6503723-3 (Version None)
Quarter: 2009Q4

REPORT INFORMATION
  Report Type: 
  Country: None (occurrence: None)
  Receive Date: 20091217
  Receipt Date: 20091210
  Transmission Date: 20100525
  Serious: Yes (Hospitalization)
  Sender: FDA-Public Use
  Company Number: PHHO2009LB06555

PATIENT
  Sex: Male
  Weight: 73 kg

DRUGS (4)
  1. AFINITOR [Suspect]
     Indication: METASTATIC RENAL CELL CARCINOMA
     Dosage: 10 MG/DAY
     Route: 048
     Dates: start: 20081107
  2. AFINITOR [Suspect]
     Dosage: 10 MG/DAY
     Route: 048
     Dates: start: 20090717, end: 20090801
  3. AFINITOR [Suspect]
     Dosage: 5 MG/DAY
     Route: 048
  4. POTASSIUM [Concomitant]
     Dosage: UNK
     Route: 048
     Dates: start: 20090727

REACTIONS (5)
  - CHILLS [None]
  - COUGH [None]
  - PNEUMONIA [None]
  - PRODUCTIVE COUGH [None]
  - PYREXIA [None]
